FAERS Safety Report 13367821 (Version 3)
Quarter: 2017Q2

REPORT INFORMATION
  Report Type: Spontaneous
  Country: US (occurrence: US)
  Receive Date: 20170324
  Receipt Date: 20170428
  Transmission Date: 20170830
  Serious: Yes (Death, Other)
  Sender: FDA-Public Use
  Company Number: US-PFIZER INC-2017124251

PATIENT
  Age: 60 Year
  Sex: Male

DRUGS (8)
  1. FUROSEMIDE. [Concomitant]
     Active Substance: FUROSEMIDE
     Indication: VASODILATION PROCEDURE
     Dosage: UNK
  2. MIDAZOLAM [Concomitant]
     Active Substance: MIDAZOLAM HYDROCHLORIDE
     Dosage: 1 MG, UNK
  3. FENTANYL CITRATE. [Suspect]
     Active Substance: FENTANYL CITRATE
     Indication: INDUCTION OF ANAESTHESIA
     Dosage: 50 UG, UNK
  4. PREDNISONE. [Concomitant]
     Active Substance: PREDNISONE
     Indication: VASODILATION PROCEDURE
     Dosage: UNK
  5. ILOPROST. [Concomitant]
     Active Substance: ILOPROST
     Indication: VASODILATION PROCEDURE
     Dosage: UNK
     Route: 055
  6. THIOPENTAL [Suspect]
     Active Substance: THIOPENTAL
     Indication: INDUCTION OF ANAESTHESIA
     Dosage: 250 MG, UNK
  7. FENTANYL CITRATE. [Suspect]
     Active Substance: FENTANYL CITRATE
     Dosage: 400 UG, UNK
  8. ROCURONIUM [Concomitant]
     Active Substance: ROCURONIUM BROMIDE
     Indication: HYPOTONIA
     Dosage: UNK

REACTIONS (4)
  - Ventricular tachycardia [Fatal]
  - Pulmonary hypertensive crisis [Fatal]
  - Cardio-respiratory arrest [Fatal]
  - Right ventricular failure [Fatal]
